FAERS Safety Report 10250122 (Version 1)
Quarter: 2014Q2

REPORT INFORMATION
  Report Type: Spontaneous
  Country: US (occurrence: US)
  Receive Date: 20140620
  Receipt Date: 20140620
  Transmission Date: 20141212
  Serious: No
  Sender: FDA-Public Use
  Company Number: US-BRISTOL-MYERS SQUIBB COMPANY-20674008

PATIENT
  Age: 84 Year
  Sex: Female

DRUGS (11)
  1. ELIQUIS [Suspect]
  2. PROPRANOLOL [Concomitant]
  3. PRAVASTATIN SODIUM [Concomitant]
  4. DILTIAZEM HCL [Concomitant]
  5. DIGOXIN [Concomitant]
  6. FOLIC ACID [Concomitant]
  7. VITAMIN D3 [Concomitant]
  8. CALCIUM [Concomitant]
  9. MAGNESIUM [Concomitant]
  10. ZINC [Concomitant]
     Dosage: TABLET
  11. ASPIRIN [Concomitant]

REACTIONS (2)
  - Diarrhoea [Recovered/Resolved]
  - Drug administration error [Unknown]
